FAERS Safety Report 7715351-2 (Version None)
Quarter: 2011Q3

REPORT INFORMATION
  Report Type: 
  Country: None (occurrence: None)
  Receive Date: 20110810
  Receipt Date: 20110616
  Transmission Date: 20111222
  Serious: No
  Sender: FDA-Public Use
  Company Number: 1000021659

PATIENT
  Sex: Male

DRUGS (2)
  1. SAVELLA [Suspect]
     Indication: BACK PAIN
     Dosage: ORAL
     Route: 048
     Dates: end: 20110415
  2. SAVELLA [Suspect]
     Indication: BACK PAIN
     Dosage: 100 MG (50 MG, 2 IN 1 D), ORAL
     Route: 048
     Dates: start: 20110416

REACTIONS (6)
  - BACK PAIN [None]
  - RENAL PAIN [None]
  - PROSTATOMEGALY [None]
  - INSOMNIA [None]
  - DYSPNOEA [None]
  - HYPERHIDROSIS [None]
